FAERS Safety Report 9844823 (Version 1)
Quarter: 2014Q1

REPORT INFORMATION
  Report Type: Spontaneous
  Country: US (occurrence: None)
  Receive Date: 20140122
  Receipt Date: 20140122
  Transmission Date: 20141002
  Serious: Yes (Other)
  Sender: FDA-Public Use
  Company Number: 2014AP000249

PATIENT
  Age: 70 Year
  Sex: Male

DRUGS (3)
  1. DILTIAZEM [Suspect]
     Indication: ATRIAL FIBRILLATION
  2. ENOXAPARIN SODIUM [Concomitant]
  3. PARACETAMOL [Concomitant]

REACTIONS (18)
  - Hypotension [None]
  - Ischaemic hepatitis [None]
  - Epistaxis [None]
  - Oedema peripheral [None]
  - Thrombocytopenia [None]
  - Prothrombin time prolonged [None]
  - Renal failure [None]
  - Hepatic failure [None]
  - Pneumonia [None]
  - Hepatic cirrhosis [None]
  - Hypertension [None]
  - Tricuspid valve incompetence [None]
  - Mitral valve incompetence [None]
  - Aortic valve incompetence [None]
  - Condition aggravated [None]
  - Ascites [None]
  - Moraxella test positive [None]
  - Infusion related reaction [None]
